FAERS Safety Report 8489889-7 (Version None)
Quarter: 2012Q3

REPORT INFORMATION
  Report Type: 
  Country: None (occurrence: None)
  Receive Date: 20120705
  Receipt Date: 20120618
  Transmission Date: 20120928
  Serious: No
  Sender: FDA-Public Use
  Company Number: US-BAYER-2012-060767

PATIENT
  Age: 87 Year
  Sex: Male
  Weight: 80 kg

DRUGS (5)
  1. ASPIRIN [Suspect]
     Indication: ISCHAEMIC HEART DISEASE PROPHYLAXIS
     Route: 048
  2. ALEVE (CAPLET) [Suspect]
     Indication: BACK PAIN
     Dosage: 1 DF, QID
     Route: 048
     Dates: start: 20120615
  3. ZOLOFT [Concomitant]
  4. FLOMAX [Concomitant]
  5. POTASSIUM [Concomitant]

REACTIONS (2)
  - BALANCE DISORDER [None]
  - DIZZINESS [None]
